FAERS Safety Report 4523936-X (Version None)
Quarter: 2004Q4

REPORT INFORMATION
  Report Type: 
  Country: None (occurrence: None)
  Receive Date: 20041209
  Receipt Date: 20041129
  Transmission Date: 20050328
  Serious: No
  Sender: FDA-Public Use
  Company Number: 2004UW24438

PATIENT
  Age: 61 Year
  Sex: Female
  Weight: 72.574 kg

DRUGS (4)
  1. RHINOCORT [Suspect]
     Indication: MULTIPLE ALLERGIES
     Dosage: TWO SPRAYS EACH NOSTRIL TWICE DAILY
     Dates: start: 20001101, end: 20041119
  2. PULMICORT [Concomitant]
  3. QVAR 40 [Concomitant]
  4. SINGULAIR [Concomitant]

REACTIONS (3)
  - COUGH [None]
  - LENS DISORDER [None]
  - MYALGIA [None]
